FAERS Safety Report 9435799 (Version 1)
Quarter: 2013Q3

REPORT INFORMATION
  Report Type: Spontaneous
  Country: US (occurrence: US)
  Receive Date: 20130801
  Receipt Date: 20130801
  Transmission Date: 20140515
  Serious: Yes (Other)
  Sender: FDA-Public Use
  Company Number: US-ASTRAZENECA-2013SE56628

PATIENT
  Age: 69 Year
  Sex: Male
  Weight: 95.3 kg

DRUGS (5)
  1. CRESTOR [Suspect]
     Route: 048
  2. TOPROL XL [Suspect]
     Indication: ATRIAL FIBRILLATION
     Route: 048
     Dates: start: 2003
  3. TOPROL XL [Suspect]
     Indication: ATRIAL FIBRILLATION
     Route: 048
     Dates: end: 201307
  4. METOPROLOL SUCCINATE (WATSON) [Suspect]
     Indication: ATRIAL FIBRILLATION
     Route: 048
     Dates: start: 201307
  5. ACE INHIBITOR [Concomitant]

REACTIONS (3)
  - Heart rate decreased [Not Recovered/Not Resolved]
  - Extrasystoles [Unknown]
  - Dizziness [Not Recovered/Not Resolved]
